FAERS Safety Report 9634048 (Version 2)
Quarter: 2013Q4

REPORT INFORMATION
  Report Type: Spontaneous
  Country: US (occurrence: US)
  Receive Date: 20131021
  Receipt Date: 20131218
  Transmission Date: 20140711
  Serious: No
  Sender: FDA-Public Use
  Company Number: US-009507513-1310USA006961

PATIENT
  Age: 60 Year
  Sex: Male

DRUGS (1)
  1. LOSARTAN POTASSIUM (+) HYDROCHLOROTHIAZIDE [Suspect]
     Dosage: UNK
     Route: 048
     Dates: start: 201310, end: 20131013

REACTIONS (4)
  - Blood pressure increased [Recovering/Resolving]
  - Fatigue [Unknown]
  - Malaise [Unknown]
  - Therapeutic response decreased [Unknown]
